FAERS Safety Report 7586337-6 (Version None)
Quarter: 2011Q2

REPORT INFORMATION
  Report Type: 
  Country: None (occurrence: None)
  Receive Date: 20110630
  Receipt Date: 20110630
  Transmission Date: 20111010
  Serious: Yes (Hospitalization)
  Sender: FDA-Public Use
  Company Number: None

PATIENT
  Age: 24 Year
  Sex: Female
  Weight: 55.7924 kg

DRUGS (2)
  1. IBUPROFEN [Concomitant]
  2. CYMBALTA [Suspect]
     Dosage: 60MG DAILY
     Dates: start: 20110501

REACTIONS (2)
  - ABDOMINAL PAIN LOWER [None]
  - TRANSAMINASES INCREASED [None]
